FAERS Safety Report 25542416 (Version 2)
Quarter: 2025Q3

REPORT INFORMATION
  Report Type: Spontaneous
  Country: US (occurrence: US)
  Receive Date: 20250711
  Receipt Date: 20250816
  Transmission Date: 20251020
  Serious: No
  Sender: ALEXION PHARMACEUTICALS
  Company Number: US-AstraZeneca-CH-00908256A

PATIENT
  Age: 47 Year
  Sex: Female
  Weight: 75.737 kg

DRUGS (1)
  1. FARXIGA [Suspect]
     Active Substance: DAPAGLIFLOZIN PROPANEDIOL
     Indication: Type 2 diabetes mellitus
     Dates: start: 20240228, end: 20250513

REACTIONS (1)
  - Polycythaemia [Recovered/Resolved]

NARRATIVE: CASE EVENT DATE: 20240703
